FAERS Safety Report 7705461-8 (Version None)
Quarter: 2011Q3

REPORT INFORMATION
  Report Type: 
  Country: None (occurrence: None)
  Receive Date: 20110823
  Receipt Date: 20110823
  Transmission Date: 20111222
  Serious: Yes (Other)
  Sender: FDA-Public Use
  Company Number: None

PATIENT
  Age: 33 Year
  Sex: Male
  Weight: 89.1 kg

DRUGS (1)
  1. CIPROFLOXACIN [Suspect]
     Dosage: CIPROFLOXACIN 500 MG BID PO
     Route: 048
     Dates: start: 20110621

REACTIONS (5)
  - PAIN IN EXTREMITY [None]
  - CHEST PAIN [None]
  - UNEVALUABLE EVENT [None]
  - HEADACHE [None]
  - MUSCULOSKELETAL CHEST PAIN [None]
